FAERS Safety Report 5073996-5 (Version None)
Quarter: 2006Q3

REPORT INFORMATION
  Report Type: 
  Country: None (occurrence: None)
  Receive Date: 20060808
  Receipt Date: 20060803
  Transmission Date: 20061208
  Serious: Yes (Hospitalization, Disabling)
  Sender: FDA-Public Use
  Company Number: US-MERCK-0608USA01069

PATIENT
  Age: 79 Year
  Sex: Female

DRUGS (14)
  1. FOSAMAX [Suspect]
     Indication: OSTEOPOROSIS
     Route: 048
     Dates: start: 20060131
  2. NORVASC [Concomitant]
     Route: 065
  3. BUSPAR [Concomitant]
     Route: 065
  4. ATENOLOL [Concomitant]
     Route: 065
  5. CALCIUM (UNSPECIFIED) [Concomitant]
     Route: 065
  6. LOVENOX [Concomitant]
     Route: 065
  7. LORTAB [Concomitant]
     Route: 065
  8. LUNESTA [Concomitant]
     Route: 065
  9. ACETAMINOPHEN [Concomitant]
     Route: 065
  10. XALATAN [Concomitant]
     Route: 065
  11. ALPHAGAN [Concomitant]
     Route: 065
  12. DULCOLAX [Concomitant]
     Route: 065
  13. IRON (UNSPECIFIED) [Concomitant]
     Route: 065
  14. COLACE [Concomitant]
     Route: 065

REACTIONS (2)
  - IMPAIRED HEALING [None]
  - TIBIA FRACTURE [None]
